FAERS Safety Report 6727389-2 (Version None)
Quarter: 2010Q2

REPORT INFORMATION
  Report Type: 
  Country: None (occurrence: None)
  Receive Date: 20100517
  Receipt Date: 20100510
  Transmission Date: 20101027
  Serious: Yes (Death, Other)
  Sender: FDA-Public Use
  Company Number: PHHY2009JP42330

PATIENT
  Sex: Male
  Weight: 70 kg

DRUGS (11)
  1. ICL670A ICL+DISTAB [Suspect]
     Indication: MYELODYSPLASTIC SYNDROME
     Dosage: 1500 MG, QD
     Route: 048
     Dates: start: 20080910
  2. ICL670A ICL+DISTAB [Suspect]
     Indication: IRON OVERLOAD
  3. RED BLOOD CELLS [Concomitant]
     Dosage: 2 UNITS EVERY HALF  WEEK
     Dates: start: 20080911, end: 20081007
  4. DESFERAL [Concomitant]
     Indication: IRON OVERLOAD
     Dosage: 500MG
     Route: 030
     Dates: start: 20070904, end: 20090909
  5. NEORAL [Concomitant]
     Indication: MYELODYSPLASTIC SYNDROME
     Dosage: 140 MG
     Route: 048
     Dates: start: 20070802, end: 20080901
  6. PRIMOBOLAN [Concomitant]
     Indication: MYELODYSPLASTIC SYNDROME
     Dosage: 10 MG
     Route: 048
     Dates: start: 20070703, end: 20081009
  7. GLIMICRON [Concomitant]
     Indication: TYPE 2 DIABETES MELLITUS
     Dosage: 40 MG
     Route: 048
     Dates: start: 20080207, end: 20081009
  8. ALLOZYM [Concomitant]
     Dosage: 100 MG
     Route: 048
     Dates: start: 20080914, end: 20081009
  9. CRAVIT [Concomitant]
     Dosage: 300 MG
     Route: 048
     Dates: start: 20080923, end: 20080930
  10. ITRIZOLE [Concomitant]
     Dosage: 200 MG
     Route: 048
     Dates: start: 20080923, end: 20080930
  11. LASIX [Concomitant]
     Indication: CARDIAC FAILURE CONGESTIVE
     Dosage: 40 MG
     Route: 048
     Dates: start: 20081001, end: 20081009

REACTIONS (2)
  - CARDIAC FAILURE CONGESTIVE [None]
  - PNEUMONIA [None]
